FAERS Safety Report 9911629 (Version 2)
Quarter: 2016Q1

REPORT INFORMATION
  Report Type: Spontaneous
  Country: US (occurrence: US)
  Receive Date: 20140219
  Receipt Date: 20160329
  Transmission Date: 20160526
  Serious: Yes (Hospitalization, Other)
  Sender: FDA-Public Use
  Company Number: PHEH2014US003039

PATIENT
  Age: 64 Year
  Sex: Male

DRUGS (6)
  1. VALSARTAN. [Concomitant]
     Active Substance: VALSARTAN
     Indication: PRODUCT USED FOR UNKNOWN INDICATION
     Dosage: 160 MG
     Route: 048
  2. DOXAZOSIN [Concomitant]
     Active Substance: DOXAZOSIN\DOXAZOSIN MESYLATE
     Indication: PRODUCT USED FOR UNKNOWN INDICATION
     Dosage: 2 MG, BID
     Route: 048
  3. LANTUS [Concomitant]
     Active Substance: INSULIN GLARGINE
     Indication: PRODUCT USED FOR UNKNOWN INDICATION
     Dosage: 100 U
     Route: 058
  4. TEKTURNA [Suspect]
     Active Substance: ALISKIREN HEMIFUMARATE
     Indication: HYPERTENSION
     Dosage: 300 MG, QD
     Route: 048
     Dates: start: 20091027
  5. TEKTURNA [Suspect]
     Active Substance: ALISKIREN HEMIFUMARATE
     Indication: MALIGNANT HYPERTENSION
  6. ASPIRIN//ACETYLSALICYLIC ACID [Concomitant]
     Indication: PRODUCT USED FOR UNKNOWN INDICATION
     Dosage: 81 MG
     Route: 048

REACTIONS (13)
  - Hypertension [Unknown]
  - Diabetes mellitus [Unknown]
  - Hyperkalaemia [Unknown]
  - Abdominal pain [Unknown]
  - Condition aggravated [Unknown]
  - Acute kidney injury [Unknown]
  - Abdominal distension [Unknown]
  - Blood cholesterol increased [Unknown]
  - Anxiety [Unknown]
  - Back pain [Unknown]
  - Chronic kidney disease [Unknown]
  - Appendicitis perforated [Unknown]
  - Abdominal sepsis [Unknown]

NARRATIVE: CASE EVENT DATE: 20120605
